FAERS Safety Report 25647825 (Version 1)
Quarter: 2025Q3

REPORT INFORMATION
  Report Type: Report from Study
  Country: US (occurrence: US)
  Receive Date: 20250806
  Receipt Date: 20250806
  Transmission Date: 20251020
  Serious: Yes (Other)
  Sender: ASTELLAS
  Company Number: US-ASTELLAS-2025-AER-042935

PATIENT
  Age: 58 Year
  Sex: Male

DRUGS (1)
  1. GILTERITINIB [Suspect]
     Active Substance: GILTERITINIB
     Indication: Acute myeloid leukaemia (in remission)
     Route: 048
     Dates: start: 20211126

REACTIONS (3)
  - Thrombocytopenia [Unknown]
  - Tendon injury [Unknown]
  - Back pain [Unknown]
